FAERS Safety Report 9782727 (Version 1)
Quarter: 2013Q4

REPORT INFORMATION
  Report Type: Spontaneous
  Country: US (occurrence: US)
  Receive Date: 20131226
  Receipt Date: 20131226
  Transmission Date: 20140711
  Serious: Yes (Other)
  Sender: FDA-Public Use
  Company Number: US-ALLERGAN-1320013US

PATIENT
  Age: 10 Year
  Sex: Male
  Weight: 37 kg

DRUGS (1)
  1. BOTOX [Suspect]
     Indication: CEREBRAL PALSY
     Dosage: 400 UNITS, SINGLE
     Route: 030
     Dates: start: 20131217, end: 20131217

REACTIONS (12)
  - Blindness transient [Recovered/Resolved]
  - Complicated migraine [Recovering/Resolving]
  - Dizziness [Recovered/Resolved]
  - Muscle tightness [Recovered/Resolved]
  - Dyskinesia [Recovered/Resolved]
  - Lethargy [Recovered/Resolved]
  - Vomiting [Recovered/Resolved]
  - Dizziness [Recovered/Resolved]
  - Tunnel vision [Recovered/Resolved]
  - Muscular weakness [Recovered/Resolved]
  - Blood pressure increased [Recovered/Resolved]
  - Off label use [Unknown]
